FAERS Safety Report 7670786-1 (Version None)
Quarter: 2011Q3

REPORT INFORMATION
  Report Type: 
  Country: None (occurrence: None)
  Receive Date: 20110809
  Receipt Date: 20110803
  Transmission Date: 20111222
  Serious: Yes (Other)
  Sender: FDA-Public Use
  Company Number: CA-BRISTOL-MYERS SQUIBB COMPANY-15950280

PATIENT
  Age: 3 Decade
  Sex: Female

DRUGS (2)
  1. ABILIFY [Suspect]
     Indication: BIPOLAR DISORDER
     Dosage: DRUG INTERRUPTED AND RESTARTED
     Route: 048
  2. ZYPREXA [Suspect]

REACTIONS (2)
  - BIPOLAR DISORDER [None]
  - WEIGHT INCREASED [None]
